FAERS Safety Report 20410391 (Version 1)
Quarter: 2022Q1

REPORT INFORMATION
  Report Type: Spontaneous
  Country: NO (occurrence: NO)
  Receive Date: 20220201
  Receipt Date: 20220201
  Transmission Date: 20220423
  Serious: Yes (Life-Threatening, Other)
  Sender: FDA-Public Use
  Company Number: None

PATIENT
  Age: 19 Year
  Sex: Female
  Weight: 42 kg

DRUGS (4)
  1. TOPAMAX [Suspect]
     Active Substance: TOPIRAMATE
     Indication: Epilepsy
     Route: 048
     Dates: start: 2017, end: 2021
  2. PHENYTOIN [Concomitant]
     Active Substance: PHENYTOIN
     Indication: Epilepsy
     Dosage: 100 MG IN THE MORNING, AND 75 MG IN THE EVENING.
     Route: 065
     Dates: start: 2020
  3. LAMICTAL [Concomitant]
     Active Substance: LAMOTRIGINE
     Indication: Epilepsy
  4. KEPPRA [Concomitant]
     Active Substance: LEVETIRACETAM
     Indication: Epilepsy
     Dosage: 1750 2 TIMES A DAY
     Dates: end: 2021

REACTIONS (14)
  - Hypophagia [Unknown]
  - Eating disorder [Not Recovered/Not Resolved]
  - Epilepsy [Unknown]
  - Intentional self-injury [Unknown]
  - Suicidal ideation [Recovered/Resolved]
  - Depression [Recovered/Resolved with Sequelae]
  - Underweight [Unknown]
  - Abnormal loss of weight [Unknown]
  - Eating disorder symptom [Unknown]
  - Anxiety [Not Recovered/Not Resolved]
  - Rehabilitation therapy [Unknown]
  - Decreased appetite [Unknown]
  - Specialist consultation [Not Recovered/Not Resolved]
  - Specialist consultation [Not Recovered/Not Resolved]

NARRATIVE: CASE EVENT DATE: 20170101
